FAERS Safety Report 17751909 (Version 1)
Quarter: 2020Q2

REPORT INFORMATION
  Report Type: Spontaneous
  Country: FR (occurrence: FR)
  Receive Date: 20200506
  Receipt Date: 20200506
  Transmission Date: 20200714
  Serious: Yes (Hospitalization)
  Sender: FDA-Public Use
  Company Number: NVSC2020FR121442

PATIENT
  Age: 82 Year
  Sex: Female
  Weight: 80 kg

DRUGS (9)
  1. LASILIX [Interacting]
     Active Substance: FUROSEMIDE
     Dosage: UNK
     Route: 041
     Dates: start: 20200117
  2. SPIRONOLACTONE ARROW [Interacting]
     Active Substance: SPIRONOLACTONE
     Indication: CORONARY ARTERY DISEASE
     Dosage: 25 MG, QD
     Route: 048
     Dates: start: 20200116
  3. VALSARTAN ARROW [Interacting]
     Active Substance: VALSARTAN
     Indication: CORONARY ARTERY DISEASE
     Dosage: 40 MG, QD
     Route: 048
     Dates: start: 20200116
  4. XENETIX [Interacting]
     Active Substance: IOBITRIDOL
     Indication: ANGIOCARDIOGRAM
     Dosage: 120 ML, ONCE/SINGLE
     Route: 013
     Dates: start: 20200115
  5. VOLTARENE (DICLOFENAC SODIUM) [Suspect]
     Active Substance: DICLOFENAC SODIUM
     Indication: ARTHRALGIA
     Dosage: UNK
     Route: 048
     Dates: end: 20200115
  6. VALSARTAN ARROW [Interacting]
     Active Substance: VALSARTAN
     Dosage: 40 MG, QD
     Route: 048
     Dates: start: 20200117
  7. LASILIX [Interacting]
     Active Substance: FUROSEMIDE
     Indication: HYPERNATRAEMIA
     Dosage: UNK
     Route: 041
     Dates: start: 20200116
  8. SPIRONOLACTONE ARROW [Interacting]
     Active Substance: SPIRONOLACTONE
     Dosage: 25 MG, QD
     Route: 048
     Dates: start: 20200121
  9. XENETIX [Interacting]
     Active Substance: IOBITRIDOL
     Dosage: 120 ML, ONCE/SINGLE
     Route: 013
     Dates: start: 20200115

REACTIONS (1)
  - Acute kidney injury [Not Recovered/Not Resolved]

NARRATIVE: CASE EVENT DATE: 20200118
